FAERS Safety Report 25535552 (Version 2)
Quarter: 2025Q4

REPORT INFORMATION
  Report Type: Spontaneous
  Country: US (occurrence: US)
  Receive Date: 20250709
  Receipt Date: 20251014
  Transmission Date: 20260117
  Serious: No
  Sender: BOTANIX PHARMACEUTICALS
  Company Number: US-BOTANIX PHARMACEUTICALS-2025BOT00203

PATIENT
  Age: 46 Year
  Sex: Female
  Weight: 65.76 kg

DRUGS (7)
  1. SOFDRA [Suspect]
     Active Substance: SOFPIRONIUM BROMIDE
     Indication: Hyperhidrosis
     Dosage: 1 PUMP APPLIED TO ARMPIT/UNDERARM, 1X/DAY IN THE EVENING/BEDTIME
     Route: 061
     Dates: start: 202506, end: 2025
  2. VITAMINS NOS [Concomitant]
     Active Substance: VITAMINS
  3. PROBIOTICS [PROBIOTICS NOS] [Concomitant]
  4. UNSPECIFIED ALLERGY PILL [Concomitant]
     Dosage: UNK, 1X/DAY
  5. QULIPTA [Concomitant]
     Active Substance: ATOGEPANT
  6. SERTRALINE [Concomitant]
     Active Substance: SERTRALINE HYDROCHLORIDE
  7. UNSPECIFIED BLOOD PRESSURE PILL [Concomitant]
     Dosage: UNK

REACTIONS (3)
  - Throat irritation [Not Recovered/Not Resolved]
  - Vision blurred [Recovered/Resolved]
  - Dry mouth [Not Recovered/Not Resolved]

NARRATIVE: CASE EVENT DATE: 20250601
